FAERS Safety Report 17988574 (Version 3)
Quarter: 2020Q3

REPORT INFORMATION
  Report Type: Spontaneous
  Country: US (occurrence: US)
  Receive Date: 20200707
  Receipt Date: 20200721
  Transmission Date: 20201103
  Serious: Yes (Hospitalization)
  Sender: FDA-Public Use
  Company Number: US-HORIZON-TEP-0725-2020

PATIENT
  Age: 57 Year
  Sex: Male

DRUGS (10)
  1. WELLBUTRIN [Concomitant]
     Active Substance: BUPROPION HYDROCHLORIDE
  2. VITAMIN D3 [Concomitant]
     Active Substance: CHOLECALCIFEROL
  3. SODIUM CHLORIDE 0.9% [Concomitant]
     Active Substance: SODIUM CHLORIDE
  4. TEPEZZA [Suspect]
     Active Substance: TEPROTUMUMAB-TRBW
     Indication: ENDOCRINE OPHTHALMOPATHY
     Dosage: 940MG (TOTAL DOSE); 10 MG/KG ONCE EVERY 3 WEEKS
     Route: 042
     Dates: start: 20200611
  5. BIKTARVY [Concomitant]
     Active Substance: BICTEGRAVIR SODIUM\EMTRICITABINE\TENOFOVIR ALAFENAMIDE FUMARATE
  6. GENVOYA [Concomitant]
     Active Substance: COBICISTAT\ELVITEGRAVIR\EMTRICITABINE\TENOFOVIR ALAFENAMIDE FUMARATE
  7. CITALOPRAM [Concomitant]
     Active Substance: CITALOPRAM HYDROBROMIDE
  8. SALINE [Concomitant]
     Active Substance: SODIUM CHLORIDE
  9. METHIMAZOLE. [Concomitant]
     Active Substance: METHIMAZOLE
  10. STERILE WATER [Concomitant]
     Active Substance: WATER

REACTIONS (9)
  - Orgasm abnormal [Recovering/Resolving]
  - Incoherent [Unknown]
  - Abdominal pain [Unknown]
  - Diarrhoea [Unknown]
  - Loss of consciousness [Unknown]
  - Urinary incontinence [Unknown]
  - Anal incontinence [Unknown]
  - Dysuria [Recovering/Resolving]
  - Pain [Recovering/Resolving]

NARRATIVE: CASE EVENT DATE: 20200611
